FAERS Safety Report 8809383 (Version 1)
Quarter: 2012Q4

REPORT INFORMATION
  Report Type: Spontaneous
  Country: US (occurrence: None)
  Receive Date: 20120924
  Receipt Date: 20120924
  Transmission Date: 20130627
  Serious: Yes (Other)
  Sender: FDA-Public Use
  Company Number: None

PATIENT
  Age: 73 Year
  Sex: Female
  Weight: 89.36 kg

DRUGS (2)
  1. CELEXA [Suspect]
  2. CELEXA [Suspect]

REACTIONS (4)
  - Rash pustular [None]
  - Gingival abscess [None]
  - Anxiety [None]
  - Blood glucose decreased [None]
